FAERS Safety Report 4900607-9 (Version None)
Quarter: 2006Q1

REPORT INFORMATION
  Report Type: 
  Country: None (occurrence: None)
  Receive Date: 20060131
  Receipt Date: 20060123
  Transmission Date: 20060701
  Serious: Yes (Other)
  Sender: FDA-Public Use
  Company Number: 2006005089

PATIENT
  Sex: Male

DRUGS (6)
  1. CARDURA [Suspect]
     Indication: HYPERTENSION
     Dosage: 8 MG, DAILY, INTERVAL: EVERY DAY); UNKNOWN
     Dates: start: 20050101
  2. DILTIAZEM [Suspect]
     Indication: HYPERTENSION
     Dosage: 240 MG (120 MG, BID, INTERVAL: EVERY DAY); UNKNOWN
     Dates: start: 20050101
  3. ACEON [Suspect]
     Indication: HYPERTENSION
     Dates: start: 20050101, end: 20050101
  4. ATACAND [Concomitant]
  5. ISOSORBIDE MONONITRATE [Concomitant]
  6. HYDROCHLOROTHIAZIDE [Concomitant]

REACTIONS (7)
  - C-REACTIVE PROTEIN INCREASED [None]
  - HAEMORRHAGE [None]
  - INFLAMMATION [None]
  - PHARMACEUTICAL PRODUCT COMPLAINT [None]
  - SINUS DISORDER [None]
  - SNEEZING [None]
  - WEIGHT INCREASED [None]
